FAERS Safety Report 17072224 (Version 1)
Quarter: 2019Q4

REPORT INFORMATION
  Report Type: Spontaneous
  Country: US (occurrence: US)
  Receive Date: 20191123
  Receipt Date: 20191123
  Transmission Date: 20200122
  Serious: No
  Sender: FDA-Public Use
  Company Number: None

PATIENT
  Age: 69 Year
  Sex: Male
  Weight: 74.7 kg

DRUGS (3)
  1. LOSORTAN GABAPENTIN [Concomitant]
  2. METHOCARBAMOL 500 MG TAB [Suspect]
     Active Substance: METHOCARBAMOL
     Indication: HYPOAESTHESIA
     Dosage: ?          QUANTITY:1 TABLET(S);?
     Route: 048
     Dates: start: 20191120, end: 20191122
  3. METHOCARBAMOL 500 MG TAB [Suspect]
     Active Substance: METHOCARBAMOL
     Indication: PAIN IN EXTREMITY
     Dosage: ?          QUANTITY:1 TABLET(S);?
     Route: 048
     Dates: start: 20191120, end: 20191122

REACTIONS (5)
  - Vomiting [None]
  - Nausea [None]
  - Abdominal discomfort [None]
  - Product taste abnormal [None]
  - Tongue disorder [None]

NARRATIVE: CASE EVENT DATE: 20191120
